FAERS Safety Report 5003356-4 (Version None)
Quarter: 2006Q2

REPORT INFORMATION
  Report Type: 
  Country: None (occurrence: None)
  Receive Date: 20060511
  Receipt Date: 20060426
  Transmission Date: 20061013
  Serious: Yes (Life-Threatening, Hospitalization)
  Sender: FDA-Public Use
  Company Number: 02100-JPN-06-0132

PATIENT
  Age: 50 Year
  Sex: Female

DRUGS (7)
  1. CILOSTAZOL [Suspect]
     Indication: PERIPHERAL ISCHAEMIA
     Dosage: 200 MG
     Route: 048
     Dates: start: 20060308, end: 20060322
  2. THEOPHYLLINE [Concomitant]
  3. FAMOTIDINE [Concomitant]
  4. CANDESARTAN CILEXETIL [Concomitant]
  5. AMLODIPINE BESYLATE [Concomitant]
  6. TEPRENONE [Concomitant]
  7. NITROGLYCERIN [Concomitant]

REACTIONS (9)
  - ASTHMA [None]
  - BRADYCARDIA [None]
  - CARDIO-RESPIRATORY ARREST [None]
  - DISSEMINATED INTRAVASCULAR COAGULATION [None]
  - DRUG HYPERSENSITIVITY [None]
  - SPUTUM RETENTION [None]
  - THROMBOCYTOPENIA [None]
  - TRACHEAL HAEMORRHAGE [None]
  - TRACHEAL OEDEMA [None]
